FAERS Safety Report 5843425-X (Version None)
Quarter: 2008Q3

REPORT INFORMATION
  Report Type: 
  Country: None (occurrence: None)
  Receive Date: 20080813
  Receipt Date: 20080805
  Transmission Date: 20090109
  Serious: Yes (Hospitalization)
  Sender: FDA-Public Use
  Company Number: B0532869A

PATIENT
  Age: 53 Year
  Sex: Male

DRUGS (3)
  1. BUPROPION HCL [Suspect]
     Dosage: 150MG TWICE PER DAY
     Route: 048
  2. PAROXETINE HCL [Suspect]
     Indication: DEPRESSION
     Dosage: 20MG PER DAY
     Route: 065
  3. METOPROLOL SUCCINATE [Suspect]
     Indication: HYPERTENSION
     Dosage: 50MG TWICE PER DAY
     Route: 065

REACTIONS (6)
  - ACUTE CORONARY SYNDROME [None]
  - ANGINA PECTORIS [None]
  - DRUG INTERACTION [None]
  - HYPOTENSION [None]
  - SINUS BRADYCARDIA [None]
  - VENTRICULAR TACHYCARDIA [None]
